FAERS Safety Report 4296352-6 (Version None)
Quarter: 2004Q1

REPORT INFORMATION
  Report Type: 
  Country: None (occurrence: None)
  Receive Date: 20040217
  Receipt Date: 20031114
  Transmission Date: 20041129
  Serious: Yes (Other)
  Sender: FDA-Public Use
  Company Number: PHNU2003DE04044

PATIENT
  Sex: Male

DRUGS (1)
  1. PROVAS [Suspect]
     Route: 048

REACTIONS (2)
  - ATROPHY [None]
  - CEREBELLAR ATROPHY [None]
